FAERS Safety Report 23627892 (Version 1)
Quarter: 2024Q1

REPORT INFORMATION
  Report Type: Spontaneous
  Country: US (occurrence: US)
  Receive Date: 20240313
  Receipt Date: 20240313
  Transmission Date: 20240409
  Serious: Yes (Death)
  Sender: FDA-Public Use
  Company Number: US-Mission Pharmacal Company-2154368

PATIENT
  Age: 32 Year
  Sex: Female

DRUGS (2)
  1. POTASSIUM CITRATE [Suspect]
     Active Substance: POTASSIUM CITRATE
     Route: 048
  2. THIOLA EC [Concomitant]
     Active Substance: TIOPRONIN
     Route: 048
     Dates: start: 20230910, end: 20240227

REACTIONS (1)
  - Death [Fatal]

NARRATIVE: CASE EVENT DATE: 20240227
